FAERS Safety Report 7834158-9 (Version None)
Quarter: 2011Q4

REPORT INFORMATION
  Report Type: 
  Country: None (occurrence: None)
  Receive Date: 20111024
  Receipt Date: 20111014
  Transmission Date: 20120403
  Serious: Yes (Other)
  Sender: FDA-Public Use
  Company Number: PHEH2011US06040

PATIENT
  Sex: Male

DRUGS (18)
  1. BENAZEPRIL HYDROCHLORIDE [Suspect]
  2. CLONAZEPAM [Concomitant]
     Indication: ANXIETY
  3. TEKTURNA [Suspect]
  4. LISINOPRIL [Suspect]
  5. VALTURNA [Suspect]
  6. FENTANYL [Concomitant]
     Indication: BACK PAIN
  7. SOMA [Concomitant]
  8. CYMBALTA [Concomitant]
     Indication: ANXIETY
  9. PRAVASTATIN SODIUM [Concomitant]
     Indication: BLOOD CHOLESTEROL
  10. HYDROCODONE BITARTRATE [Concomitant]
     Indication: BACK PAIN
  11. FISH OIL [Concomitant]
  12. ANALGESICS [Concomitant]
     Indication: BACK PAIN
  13. DIOVAN [Suspect]
  14. ANTIHYPERTENSIVES [Suspect]
     Indication: BLOOD PRESSURE
     Dosage: 1 DF, UNK
  15. SYNTHROID [Concomitant]
     Indication: THYROID DISORDER
  16. CARISOPRODOL [Concomitant]
  17. CALCIUM CARBONATE [Concomitant]
  18. ASPIRIN [Concomitant]

REACTIONS (7)
  - LOSS OF CONSCIOUSNESS [None]
  - DRUG INEFFECTIVE [None]
  - HEAD INJURY [None]
  - HAEMORRHAGE [None]
  - VERTIGO [None]
  - ROAD TRAFFIC ACCIDENT [None]
  - BLOOD PRESSURE FLUCTUATION [None]
